FAERS Safety Report 6518163-0 (Version None)
Quarter: 2009Q4

REPORT INFORMATION
  Report Type: 
  Country: None (occurrence: None)
  Receive Date: 20091224
  Receipt Date: 20091215
  Transmission Date: 20100525
  Serious: No
  Sender: FDA-Public Use
  Company Number: PHHY2009FR52051

PATIENT
  Sex: Female

DRUGS (2)
  1. ACLASTA [Suspect]
     Indication: OSTEOPOROSIS
     Dosage: UNK
     Dates: start: 20091113
  2. PARACETAMOL [Concomitant]

REACTIONS (8)
  - BEDRIDDEN [None]
  - BONE PAIN [None]
  - CARPAL TUNNEL SYNDROME [None]
  - CHILLS [None]
  - CONCOMITANT DISEASE AGGRAVATED [None]
  - INFLUENZA LIKE ILLNESS [None]
  - MYALGIA [None]
  - OEDEMA PERIPHERAL [None]
